FAERS Safety Report 6733473-X (Version None)
Quarter: 2010Q2

REPORT INFORMATION
  Report Type: 
  Country: None (occurrence: None)
  Receive Date: 20100520
  Receipt Date: 20100507
  Transmission Date: 20101027
  Serious: Yes (Other)
  Sender: FDA-Public Use
  Company Number: PHHY2010DE15543

PATIENT
  Sex: Female

DRUGS (1)
  1. GLEEVEC [Suspect]
     Indication: METASTATIC GASTRIC CANCER
     Dosage: 400 MG DAILY
     Dates: start: 20080501

REACTIONS (2)
  - ALOPECIA [None]
  - HYPERTHYROIDISM [None]
